FAERS Safety Report 14467032 (Version 1)
Quarter: 2018Q1

REPORT INFORMATION
  Report Type: Other
  Country: US (occurrence: US)
  Receive Date: 20180131
  Receipt Date: 20180131
  Transmission Date: 20180509
  Serious: No
  Sender: FDA-Public Use
  Company Number: US-ACORDA-ACO_137961_2017

PATIENT
  Age: 36 Year
  Sex: Female

DRUGS (1)
  1. AMPYRA [Suspect]
     Active Substance: DALFAMPRIDINE
     Indication: MULTIPLE SCLEROSIS
     Dosage: 10 MG, Q 12 HRS
     Route: 048
     Dates: start: 201005, end: 201502

REACTIONS (4)
  - Drug ineffective [Unknown]
  - Walking aid user [Unknown]
  - Condition aggravated [Unknown]
  - Wheelchair user [Unknown]
